FAERS Safety Report 10185189 (Version 1)
Quarter: 2014Q2

REPORT INFORMATION
  Report Type: Spontaneous
  Country: GB (occurrence: GB)
  Receive Date: 20140521
  Receipt Date: 20140521
  Transmission Date: 20141212
  Serious: Yes (Hospitalization)
  Sender: FDA-Public Use
  Company Number: GB-NOVOPROD-410283

PATIENT
  Sex: Female

DRUGS (1)
  1. INSULATARD INNOLET [Suspect]
     Indication: DIABETES MELLITUS
     Dosage: UNK
     Route: 065

REACTIONS (4)
  - Gastroenteritis viral [Unknown]
  - Thirst [Unknown]
  - Fatigue [Unknown]
  - Feeling abnormal [Unknown]
